FAERS Safety Report 24865819 (Version 3)
Quarter: 2025Q1

REPORT INFORMATION
  Report Type: Report from Study
  Country: CO (occurrence: CO)
  Receive Date: 20250121
  Receipt Date: 20250304
  Transmission Date: 20250409
  Serious: Yes (Hospitalization, Other)
  Sender: ABBVIE
  Company Number: CO-ABBVIE-6091062

PATIENT
  Age: 93 Year
  Sex: Male
  Weight: 60 kg

DRUGS (2)
  1. SKYRIZI [Suspect]
     Active Substance: RISANKIZUMAB-RZAA
     Indication: Psoriasis
     Dosage: FORM STRENGTH: 150 MG
     Route: 058
     Dates: start: 20230114, end: 20240625
  2. APIXABAN [Concomitant]
     Active Substance: APIXABAN
     Indication: Atrial fibrillation
     Dosage: START DATE : BEFORE SKYRIZI
     Route: 048

REACTIONS (3)
  - Hip fracture [Recovering/Resolving]
  - Fall [Unknown]
  - Joint dislocation [Recovering/Resolving]

NARRATIVE: CASE EVENT DATE: 20241201
